FAERS Safety Report 6617912-0 (Version None)
Quarter: 2010Q1

REPORT INFORMATION
  Report Type: 
  Country: None (occurrence: None)
  Receive Date: 20100308
  Receipt Date: 20100223
  Transmission Date: 20100710
  Serious: Yes (Hospitalization)
  Sender: FDA-Public Use
  Company Number: GB-MEDIMMUNE-MEDI-0010660

PATIENT
  Sex: Male

DRUGS (1)
  1. SYNAGIS [Suspect]
     Dates: start: 20091001

REACTIONS (1)
  - BRONCHIOLITIS [None]
